FAERS Safety Report 10079902 (Version 2)
Quarter: 2014Q2

REPORT INFORMATION
  Report Type: Spontaneous
  Country: GB (occurrence: GB)
  Receive Date: 20140415
  Receipt Date: 20140624
  Transmission Date: 20141212
  Serious: Yes (Death)
  Sender: FDA-Public Use
  Company Number: GB-B.I. PHARMACEUTICALS,INC./RIDGEFIELD-2014-BI-17098UK

PATIENT
  Age: 57 Year
  Sex: Male

DRUGS (4)
  1. MIRAPEXIN [Suspect]
     Indication: PARKINSON^S DISEASE
     Route: 048
     Dates: start: 2005
  2. SELEGILINE [Concomitant]
     Route: 065
  3. SINEMET [Concomitant]
     Route: 065
  4. ENTACAPONE [Concomitant]
     Route: 065

REACTIONS (2)
  - Death [Fatal]
  - Asthenia [Unknown]
